FAERS Safety Report 13299003 (Version 2)
Quarter: 2017Q2

REPORT INFORMATION
  Report Type: Spontaneous
  Country: FR (occurrence: FR)
  Receive Date: 20170306
  Receipt Date: 20170406
  Transmission Date: 20170830
  Serious: Yes (Death, Hospitalization)
  Sender: FDA-Public Use
  Company Number: FR-MUNDIPHARMA DS AND PHARMACOVIGILANCE-GBR-2017-0043853

PATIENT
  Age: 87 Year
  Sex: Female
  Weight: 54 kg

DRUGS (3)
  1. OXYNORM [Suspect]
     Active Substance: OXYCODONE HYDROCHLORIDE
     Indication: ANALGESIC INTERVENTION SUPPORTIVE THERAPY
     Dosage: 5 MG, DAILY
     Route: 048
     Dates: start: 20161121, end: 20161124
  2. LOVENOX [Concomitant]
     Active Substance: ENOXAPARIN SODIUM
     Indication: DEEP VEIN THROMBOSIS
  3. DUROGESIC [Suspect]
     Active Substance: FENTANYL
     Indication: PRODUCT USED FOR UNKNOWN INDICATION
     Dosage: 25 MCG, Q1H
     Route: 062
     Dates: start: 20161118, end: 20161121

REACTIONS (8)
  - Overdose [Recovered/Resolved]
  - Hypokalaemia [Unknown]
  - Miosis [Recovered/Resolved]
  - Bradypnoea [Recovered/Resolved]
  - Fall [Unknown]
  - Cardiac arrest [Fatal]
  - Confusional state [Recovered/Resolved]
  - Bradycardia [Recovered/Resolved]

NARRATIVE: CASE EVENT DATE: 20161119
